FAERS Safety Report 16374943 (Version 2)
Quarter: 2019Q2

REPORT INFORMATION
  Report Type: Spontaneous
  Country: IN (occurrence: IN)
  Receive Date: 20190531
  Receipt Date: 20190604
  Transmission Date: 20190711
  Serious: Yes (Death, Hospitalization, Other)
  Sender: FDA-Public Use
  Company Number: IN-ASTELLAS-2019US022874

PATIENT
  Age: 49 Year
  Sex: Female

DRUGS (13)
  1. MYCOPHENOLIC ACID. [Suspect]
     Active Substance: MYCOPHENOLIC ACID
     Route: 048
     Dates: start: 20150711, end: 20150826
  2. TACROLIMUS. [Suspect]
     Active Substance: TACROLIMUS
     Indication: PROPHYLAXIS AGAINST TRANSPLANT REJECTION
     Route: 048
     Dates: start: 20141213, end: 20150826
  3. GABAPENTIN. [Concomitant]
     Active Substance: GABAPENTIN
     Indication: NEUROPATHY PERIPHERAL
     Route: 048
     Dates: start: 20150801
  4. CALCIUM [Concomitant]
     Active Substance: CALCIUM
     Indication: HYPOCALCAEMIA
     Route: 048
     Dates: start: 20131230
  5. DEFLAZACORT [Suspect]
     Active Substance: DEFLAZACORT
     Indication: PROPHYLAXIS AGAINST TRANSPLANT REJECTION
     Route: 048
     Dates: start: 20141213, end: 20150720
  6. MYCOPHENOLIC ACID. [Suspect]
     Active Substance: MYCOPHENOLIC ACID
     Route: 048
     Dates: start: 20150523, end: 20150605
  7. MYCOPHENOLIC ACID. [Suspect]
     Active Substance: MYCOPHENOLIC ACID
     Route: 048
     Dates: start: 20150611, end: 20150623
  8. AMLODIPINE [Concomitant]
     Active Substance: AMLODIPINE BESYLATE
     Indication: HYPERTENSION
     Route: 048
  9. METOPROLOL. [Concomitant]
     Active Substance: METOPROLOL
     Indication: HYPERTENSION
     Route: 048
     Dates: start: 20131230
  10. MYCOPHENOLIC ACID. [Suspect]
     Active Substance: MYCOPHENOLIC ACID
     Indication: PROPHYLAXIS AGAINST TRANSPLANT REJECTION
     Route: 048
     Dates: start: 20141213, end: 20150425
  11. NEUROBION FORTE [Concomitant]
     Active Substance: CYANOCOBALAMIN\PYRIDOXINE HYDROCHLORIDE\THIAMINE DISULFIDE
     Indication: NEUROPATHY PERIPHERAL
     Route: 042
     Dates: start: 20150730
  12. DEFLAZACORT [Suspect]
     Active Substance: DEFLAZACORT
     Route: 048
     Dates: start: 20150803, end: 20150826
  13. ALFACALCIDOL [Concomitant]
     Active Substance: ALFACALCIDOL
     Indication: HYPOCALCAEMIA
     Dosage: 0.5 ?G, ONCE DAILY
     Route: 048
     Dates: start: 20131230

REACTIONS (9)
  - Fungal sepsis [Fatal]
  - Pyrexia [Fatal]
  - Disseminated tuberculosis [Fatal]
  - Pancreatitis acute [Fatal]
  - Abdominal pain [Fatal]
  - Lymphocele [Fatal]
  - Post procedural persistent drain fluid [Fatal]
  - Perinephric collection [Fatal]
  - Abdominal pain [Fatal]

NARRATIVE: CASE EVENT DATE: 20141223
